FAERS Safety Report 11506049 (Version 1)
Quarter: 2015Q3

REPORT INFORMATION
  Report Type: Spontaneous
  Country: US (occurrence: US)
  Receive Date: 20150915
  Receipt Date: 20150915
  Transmission Date: 20151125
  Serious: Yes (Disabling)
  Sender: FDA-Public Use
  Company Number: US-ROCHE-769411

PATIENT
  Age: 50 Year
  Sex: Female
  Weight: 56.6 kg

DRUGS (6)
  1. PLAVIX [Concomitant]
     Active Substance: CLOPIDOGREL BISULFATE
     Indication: COAGULOPATHY
     Route: 065
  2. PEGASYS [Suspect]
     Active Substance: PEGINTERFERON ALFA-2A
     Indication: HEPATITIS C
     Dosage: PRE-FILLED SYRINGE
     Route: 058
     Dates: start: 20110401, end: 20110707
  3. COUMADIN [Concomitant]
     Active Substance: WARFARIN SODIUM
     Indication: COAGULOPATHY
     Route: 065
  4. BENTYL [Concomitant]
     Active Substance: DICYCLOMINE HYDROCHLORIDE
     Indication: ABDOMINAL DISCOMFORT
     Route: 065
  5. RIBASPHERE RIBAPAK [Suspect]
     Active Substance: RIBAVIRIN
     Indication: HEPATITIS C
     Dosage: 400 MG TABLET IN MORNING AND 400 MG IN EVENING
     Route: 048
     Dates: start: 20110401, end: 20110701
  6. XANAX [Concomitant]
     Active Substance: ALPRAZOLAM
     Indication: ANXIETY
     Dosage: TAKES HALF PILL OF 0.25 MG AS NECESSARY
     Route: 065

REACTIONS (9)
  - Fatigue [Unknown]
  - Vomiting [Recovered/Resolved]
  - Weight decreased [Unknown]
  - Skin disorder [Unknown]
  - Coagulopathy [Unknown]
  - Visual impairment [Unknown]
  - Retinitis [Unknown]
  - Abdominal discomfort [Unknown]
  - Nervousness [Not Recovered/Not Resolved]

NARRATIVE: CASE EVENT DATE: 20110401
